FAERS Safety Report 15064003 (Version 1)
Quarter: 2018Q2

REPORT INFORMATION
  Report Type: Report from Study
  Country: US (occurrence: US)
  Receive Date: 20180625
  Receipt Date: 20180625
  Transmission Date: 20180711
  Serious: No
  Sender: FDA-Public Use
  Company Number: US-AMGEN-USASL2016052780

PATIENT
  Age: 53 Year
  Sex: Male

DRUGS (1)
  1. REPATHA [Suspect]
     Active Substance: EVOLOCUMAB
     Indication: HYPERLIPIDAEMIA
     Dosage: 140 MG, Q2WK
     Route: 065
     Dates: start: 20160412

REACTIONS (9)
  - Pyrexia [Recovered/Resolved]
  - Bronchitis [Recovered/Resolved]
  - Rhinorrhoea [Recovered/Resolved]
  - Upper respiratory tract infection [Unknown]
  - Lethargy [Unknown]
  - Skin burning sensation [Unknown]
  - Headache [Unknown]
  - Diarrhoea [Unknown]
  - Dizziness [Unknown]

NARRATIVE: CASE EVENT DATE: 20160418
